FAERS Safety Report 6230833-0 (Version None)
Quarter: 2009Q2

REPORT INFORMATION
  Report Type: 
  Country: None (occurrence: None)
  Receive Date: 20090616
  Receipt Date: 20090605
  Transmission Date: 20091009
  Serious: Yes (Other)
  Sender: FDA-Public Use
  Company Number: US-PFIZER INC-2009225418

PATIENT
  Age: 40 Year
  Sex: Female
  Weight: 65.77 kg

DRUGS (2)
  1. CHANTIX [Suspect]
     Indication: SMOKING CESSATION THERAPY
     Dosage: UNK
  2. PERCOCET [Concomitant]
     Indication: BACK PAIN
     Dosage: 5 MG, UNK

REACTIONS (7)
  - CONVULSION [None]
  - DIPLOPIA [None]
  - DISORIENTATION [None]
  - HEADACHE [None]
  - HYPERTENSION [None]
  - IMPAIRED DRIVING ABILITY [None]
  - SLEEP DISORDER [None]
